FAERS Safety Report 6150278-1 (Version None)
Quarter: 2009Q2

REPORT INFORMATION
  Report Type: 
  Country: None (occurrence: None)
  Receive Date: 20090408
  Receipt Date: 20090408
  Transmission Date: 20091009
  Serious: Yes (Hospitalization)
  Sender: FDA-Public Use
  Company Number: None

PATIENT
  Sex: Female
  Weight: 91.2 kg

DRUGS (1)
  1. TAXOL [Suspect]
     Dosage: 100 MG
     Dates: end: 20090105

REACTIONS (22)
  - ANOREXIA [None]
  - ASTHENIA [None]
  - BLOOD ALBUMIN DECREASED [None]
  - BLOOD ALKALINE PHOSPHATASE INCREASED [None]
  - BLOOD CALCIUM DECREASED [None]
  - BLOOD PRESSURE DIASTOLIC DECREASED [None]
  - CANDIDIASIS [None]
  - DEHYDRATION [None]
  - DIARRHOEA [None]
  - DIZZINESS POSTURAL [None]
  - DRUG EFFECT DECREASED [None]
  - FAECES DISCOLOURED [None]
  - FATIGUE [None]
  - HAEMATOCRIT DECREASED [None]
  - HAEMOGLOBIN DECREASED [None]
  - NAUSEA [None]
  - NEUTROPHIL COUNT DECREASED [None]
  - OXYGEN SATURATION DECREASED [None]
  - PROTEIN TOTAL DECREASED [None]
  - RESPIRATORY RATE INCREASED [None]
  - URINARY TRACT INFECTION FUNGAL [None]
  - WHITE BLOOD CELL COUNT DECREASED [None]
